FAERS Safety Report 19139941 (Version 7)
Quarter: 2021Q4

REPORT INFORMATION
  Report Type: Spontaneous
  Country: US (occurrence: US)
  Receive Date: 20210415
  Receipt Date: 20211012
  Transmission Date: 20220303
  Serious: Yes (Hospitalization)
  Sender: FDA-Public Use
  Company Number: US-PFIZER INC-2021191321

PATIENT
  Age: 87 Year
  Sex: Female
  Weight: 63.49 kg

DRUGS (6)
  1. DOFETILIDE [Suspect]
     Active Substance: DOFETILIDE
     Indication: Atrial fibrillation
     Dosage: 375 UG, 3X/DAY (125 MCG 3 TIMES A DAY 3 PILLS EACH TIME)
     Dates: start: 202103
  2. DOFETILIDE [Suspect]
     Active Substance: DOFETILIDE
     Indication: Atrial flutter
  3. DILTIAZEM [Concomitant]
     Active Substance: DILTIAZEM
     Dosage: UNK
     Dates: start: 202003
  4. BYSTOLIC [Concomitant]
     Active Substance: NEBIVOLOL HYDROCHLORIDE
     Dosage: 10 MG
  5. ELIQUIS [Concomitant]
     Active Substance: APIXABAN
     Indication: Blood disorder
     Dosage: 2.5, UNK (2 1/2 AM, PM)
  6. DIGOXIN [Concomitant]
     Active Substance: DIGOXIN
     Dosage: 125 MG, CYCLIC (1 EVERY OTHER DAY)

REACTIONS (7)
  - Drug ineffective [Not Recovered/Not Resolved]
  - Hypoacusis [Unknown]
  - Heart rate increased [Unknown]
  - Memory impairment [Unknown]
  - Renal disorder [Unknown]
  - Liver disorder [Unknown]
  - Body height decreased [Unknown]
